FAERS Safety Report 6360375-3 (Version None)
Quarter: 2009Q3

REPORT INFORMATION
  Report Type: 
  Country: None (occurrence: None)
  Receive Date: 20090917
  Receipt Date: 20090914
  Transmission Date: 20100115
  Serious: Yes (Other)
  Sender: FDA-Public Use
  Company Number: FR-WYE-G04428809

PATIENT
  Sex: Male

DRUGS (30)
  1. TAZOCILLINE [Suspect]
     Indication: PYREXIA
     Dosage: UNKNOWN
     Route: 042
     Dates: start: 20090725, end: 20090806
  2. METHOTREXATE [Suspect]
     Indication: ACUTE MYELOID LEUKAEMIA
     Route: 037
     Dates: start: 20090726, end: 20090726
  3. METHOTREXATE [Suspect]
     Route: 037
     Dates: start: 20090803, end: 20090803
  4. MITOXANTRONE [Suspect]
     Route: 042
     Dates: start: 20090726, end: 20090730
  5. METHYLPREDNISOLONE ACETATE [Suspect]
     Indication: ACUTE MYELOID LEUKAEMIA
     Route: 037
     Dates: start: 20090726, end: 20090726
  6. METHYLPREDNISOLONE ACETATE [Suspect]
     Route: 037
     Dates: start: 20090803, end: 20090803
  7. TARGOCID [Suspect]
     Indication: PYREXIA
     Route: 042
     Dates: start: 20090725
  8. CANCIDAS [Suspect]
     Indication: PYREXIA
     Route: 042
     Dates: start: 20090726, end: 20090809
  9. FUNGIZONE [Suspect]
     Route: 048
     Dates: start: 20090728
  10. INEXIUM [Suspect]
     Route: 042
     Dates: start: 20090728
  11. TIORFAN [Suspect]
     Route: 048
     Dates: start: 20090731
  12. METRONIDAZOLE [Suspect]
     Route: 042
     Dates: start: 20090803, end: 20090806
  13. BACTRIM [Suspect]
     Route: 048
     Dates: start: 20090804
  14. ACYCLOVIR [Suspect]
     Indication: PYREXIA
     Route: 042
     Dates: start: 20090805
  15. TIENAM [Suspect]
     Indication: PYREXIA
     Route: 042
     Dates: start: 20090807, end: 20090816
  16. CONTRAMAL [Suspect]
     Indication: PAIN
     Route: 042
     Dates: start: 20090807, end: 20090809
  17. ONDANSETRON [Concomitant]
     Indication: NAUSEA
     Route: 042
     Dates: start: 20090726
  18. PLITICAN [Concomitant]
     Indication: NAUSEA
     Route: 042
     Dates: start: 20090727, end: 20090803
  19. NALBUPHINE [Concomitant]
     Indication: PAIN
     Route: 042
     Dates: start: 20090730, end: 20090803
  20. PULMICORT-100 [Concomitant]
     Route: 055
     Dates: start: 20090730, end: 20090731
  21. SPASFON [Concomitant]
     Route: 042
     Dates: start: 20090731, end: 20090802
  22. TRANXENE [Concomitant]
     Indication: ANXIETY
     Route: 042
     Dates: start: 20090804
  23. EFFERALGAN [Concomitant]
     Indication: PAIN
     Dosage: IF NECESSARY
     Route: 048
     Dates: start: 20090725
  24. AMIKACIN [Concomitant]
     Indication: PYREXIA
     Dosage: 950 MG
     Route: 042
     Dates: start: 20090725, end: 20090726
  25. GENTAMICIN SULFATE [Suspect]
     Indication: PYREXIA
     Route: 042
     Dates: start: 20090728
  26. CIPROFLAXACIN [Suspect]
     Indication: PYREXIA
     Route: 042
     Dates: start: 20090802
  27. RASBURICASE [Concomitant]
     Route: 042
     Dates: start: 20090725, end: 20090727
  28. ARACYTINE [Suspect]
     Indication: ACUTE MYELOID LEUKAEMIA
     Dosage: CONTINUOUS INFUSION: 340 MG TOTAL DAILY (200 MG/M^2)
     Route: 042
     Dates: start: 20090726, end: 20090801
  29. ARACYTINE [Suspect]
     Route: 037
     Dates: start: 20090726, end: 20090726
  30. ARACYTINE [Suspect]
     Route: 037
     Dates: start: 20090803, end: 20090803

REACTIONS (9)
  - CHILLS [None]
  - CLUMSINESS [None]
  - CONDITION AGGRAVATED [None]
  - CONVULSION [None]
  - CYTOTOXIC OEDEMA [None]
  - DYSARTHRIA [None]
  - FACIAL PALSY [None]
  - HEADACHE [None]
  - HEMIPLEGIA [None]
